FAERS Safety Report 8470994-6 (Version None)
Quarter: 2012Q2

REPORT INFORMATION
  Report Type: 
  Country: None (occurrence: None)
  Receive Date: 20120627
  Receipt Date: 20120622
  Transmission Date: 20120825
  Serious: Yes (Death, Hospitalization)
  Sender: FDA-Public Use
  Company Number: US-CELGENEUS-163-C5013-11053380

PATIENT
  Sex: Male
  Weight: 49.9 kg

DRUGS (69)
  1. LENALIDOMIDE [Suspect]
     Indication: PROSTATE CANCER
     Dosage: 25 MILLIGRAM
     Route: 048
     Dates: start: 20110426
  2. ASPIRIN [Concomitant]
     Indication: THROMBOSIS PROPHYLAXIS
     Dosage: 81 MILLIGRAM
     Route: 048
     Dates: start: 20110426
  3. FUROSEMIDE [Concomitant]
     Dosage: 20 MILLIGRAM
     Route: 041
     Dates: start: 20110607, end: 20110607
  4. ONDANSETRON (ZOFRAN) [Concomitant]
     Indication: VOMITING
     Dosage: 4 MILLIGRAM
     Route: 041
     Dates: start: 20110607, end: 20110611
  5. SENNA-MINT WAF [Concomitant]
     Dosage: 2 TABLET
     Route: 048
     Dates: start: 20110605, end: 20110611
  6. SYNTHROID [Concomitant]
     Dosage: 50 MICROGRAM
     Route: 048
  7. METOPROLOL TARTRATE [Concomitant]
     Dosage: 5 MILLIGRAM
     Route: 041
     Dates: start: 20110607, end: 20110608
  8. METOPROLOL TARTRATE [Concomitant]
     Dosage: 37.5 MILLIGRAM
     Route: 048
     Dates: start: 20110610, end: 20110611
  9. MORPHINE SULFATE [Concomitant]
     Dosage: 1 MILLIGRAM
     Route: 041
     Dates: start: 20110604, end: 20110611
  10. MORPHINE SULFATE [Concomitant]
     Dosage: 1 MILLIGRAM
     Route: 041
  11. LEVOTHYROXINE SODIUM [Concomitant]
     Dosage: 50 MICROGRAM
     Route: 048
     Dates: start: 20110609, end: 20110611
  12. XENADERM [Concomitant]
     Dosage: 1 APPLICATION
     Route: 061
     Dates: start: 20110609, end: 20110611
  13. POTASSIUM CHLORIDE [Concomitant]
     Dosage: 20 MILLIEQUIVALENTS
     Route: 041
     Dates: start: 20110526, end: 20110526
  14. POTASSIUM CHLORIDE [Concomitant]
     Dosage: 10 MILLIEQUIVALENTS
     Route: 041
     Dates: start: 20110526, end: 20110527
  15. FUROSEMIDE [Concomitant]
     Dosage: 20MG-40MG
     Route: 041
     Dates: start: 20110529, end: 20110529
  16. ONDANSETRON (ZOFRAN) [Concomitant]
     Indication: NAUSEA
     Dosage: 8 MILLIGRAM
     Route: 048
     Dates: start: 20110426, end: 20110607
  17. PROCHLORPERAZINE [Concomitant]
     Dosage: 10 MILLIGRAM
     Route: 048
     Dates: start: 20110426
  18. VANCOMYCIN [Concomitant]
     Dosage: 750 MILLIGRAM
     Route: 041
     Dates: start: 20110601, end: 20110610
  19. ACETAMINOPHEN [Concomitant]
     Indication: PAIN
     Dosage: 650 MILLIGRAM
     Route: 048
     Dates: start: 20110601, end: 20110611
  20. METHYLPEDNISOLONE SODIUM SUCCINATE [Concomitant]
     Dosage: 4 MILLIGRAM
     Dates: start: 20110607, end: 20110608
  21. BISACODYL [Concomitant]
     Dosage: 10 MILLIGRAM
     Route: 054
     Dates: start: 20110605, end: 20110605
  22. FAMOTIDINE [Concomitant]
     Dosage: 10 MILLIGRAM
     Route: 040
     Dates: start: 20110607, end: 20110608
  23. MAGNESIUM SULFATE [Concomitant]
     Dosage: 4 GRAM
     Dates: start: 20110529, end: 20110529
  24. MAGNESIUM SULFATE [Concomitant]
     Dosage: 2 GRAM
     Dates: start: 20110606, end: 20110606
  25. SODIUM POTASSIUM PHOSPHATE [Concomitant]
     Dosage: 1 TABLET
     Route: 048
     Dates: start: 20110603, end: 20110603
  26. LENALIDOMIDE [Suspect]
     Dosage: 20 MILLIGRAM
     Route: 048
     Dates: start: 20110517, end: 20110523
  27. DILTIAZEM HCL [Concomitant]
     Indication: BLOOD PRESSURE
     Dosage: 30 MILLIGRAM
     Route: 048
     Dates: start: 20110525, end: 20110601
  28. DILTIAZEM HCL [Concomitant]
     Dosage: 10 MILLIGRAM
     Route: 041
     Dates: start: 20110525, end: 20110525
  29. DILTIAZEM HCL [Concomitant]
     Dosage: 10 MILLIGRAM
     Route: 041
     Dates: start: 20110530, end: 20110530
  30. PIPERACILLIN AND TAZOBACTAM [Concomitant]
     Dosage: 4.5 GRAM
     Route: 041
     Dates: start: 20110525, end: 20110611
  31. MORPHINE SULFATE [Concomitant]
     Dosage: 7.5 MILLIGRAM
     Route: 048
     Dates: start: 20110608, end: 20110611
  32. GABAPENTIN [Concomitant]
     Dosage: 300 MILLIGRAM
     Route: 048
     Dates: start: 20110525, end: 20110530
  33. SIMETHICONE [Concomitant]
     Dosage: 80 MILLIGRAM
     Route: 048
     Dates: start: 20110604, end: 20110604
  34. PREDNISONE TAB [Suspect]
     Indication: PROSTATE CANCER
     Dosage: 5-10MG
     Route: 048
     Dates: start: 20110426
  35. PREDNISONE TAB [Suspect]
     Dosage: 5-10MG
     Route: 048
     Dates: start: 20110517, end: 20110606
  36. DOCETAXEL [Suspect]
     Dosage: 115 MILLIGRAM
     Route: 065
     Dates: start: 20110517, end: 20110517
  37. DILTIAZEM HCL [Concomitant]
     Dosage: 15 MILLIGRAM
     Route: 041
     Dates: start: 20110601, end: 20110601
  38. METHADONE HCL [Concomitant]
     Dosage: 10 MILLIGRAM
     Route: 048
     Dates: start: 20110525, end: 20110530
  39. VITAMIN D [Concomitant]
     Dosage: 50000 UNITS
     Route: 048
  40. DOCUSATE SODIUM [Concomitant]
     Dosage: 100 MILLIGRAM
     Route: 048
     Dates: start: 20110605, end: 20110611
  41. LEVOTHYROXINE SODIUM [Concomitant]
     Dosage: 25 MICROGRAM
     Route: 041
     Dates: start: 20110525, end: 20110526
  42. POLYETHYLENE GLYCOL [Concomitant]
     Indication: CONSTIPATION
     Dosage: 1 PACKET
     Route: 048
     Dates: start: 20110527, end: 20110610
  43. DOCETAXEL [Suspect]
     Indication: PROSTATE CANCER
     Dosage: 115 MILLIGRAM
     Route: 065
     Dates: start: 20110426
  44. DEXAMETHASONE [Concomitant]
     Dosage: 8 MILLIGRAM
     Route: 048
     Dates: start: 20110426
  45. MORPHINE SULFATE [Concomitant]
     Indication: PAIN
     Dosage: .5 MILLIGRAM
     Route: 041
     Dates: start: 20110602, end: 20110604
  46. DOCUSATE SODIUM [Concomitant]
     Dosage: 100 MILLIGRAM
     Route: 048
     Dates: start: 20110527, end: 20110529
  47. NEXIUM [Concomitant]
     Dosage: 40 MILLIGRAM
     Route: 048
     Dates: start: 20110610, end: 20110611
  48. SANTYL [Concomitant]
     Dosage: 1 APPLICATION
     Route: 061
     Dates: start: 20110609, end: 20110611
  49. LEVOTHYROXINE SODIUM [Concomitant]
     Dosage: 25 MICROGRAM
     Route: 041
     Dates: start: 20110608, end: 20110608
  50. DILAUDID [Concomitant]
     Route: 065
  51. DILTIAZEM HCL [Concomitant]
     Dosage: 120 MILLIGRAM
     Route: 048
     Dates: start: 20110527, end: 20110529
  52. FUROSEMIDE [Concomitant]
     Dosage: 20 MILLIGRAM
     Route: 048
     Dates: start: 20110510
  53. MINERAL OIL [Concomitant]
     Route: 048
  54. NEURONTIN [Concomitant]
     Dosage: 300 MILLIGRAM
     Route: 048
  55. NEXIUM [Concomitant]
     Dosage: 40 MILLIGRAM
     Dates: start: 20110607, end: 20110610
  56. MAGNESIUM SULFATE [Concomitant]
     Dosage: 2 GRAM
     Dates: start: 20110526, end: 20110526
  57. MAGNESIUM SULFATE [Concomitant]
     Dosage: 4 GRAM
     Dates: start: 20110603, end: 20110603
  58. AMBIEN CR [Concomitant]
     Dosage: 12.5 MILLIGRAM
     Route: 048
  59. VALIUM [Concomitant]
     Dosage: 5 MILLIGRAM
     Route: 048
  60. METOPROLOL TARTRATE [Concomitant]
     Dosage: 25 MILLIGRAM
     Route: 048
     Dates: start: 20110609, end: 20110610
  61. METOPROLOL TARTRATE [Concomitant]
     Dosage: 5 MILLIGRAM
     Route: 041
     Dates: start: 20110610, end: 20110610
  62. MORPHINE SULFATE [Concomitant]
     Indication: PAIN
     Dosage: 5 MILLIGRAM
     Route: 048
     Dates: start: 20110605, end: 20110608
  63. DICLOXACILLIN [Concomitant]
     Dosage: 500 MILLIGRAM
     Route: 048
     Dates: start: 20110426
  64. DILTIAZEM HCL [Concomitant]
     Dosage: 30MG-45MG-60MG
     Route: 048
     Dates: start: 20110529, end: 20110609
  65. DILTIAZEM HCL [Concomitant]
     Dosage: 10 MILLIGRAM
     Route: 041
     Dates: start: 20110607, end: 20110607
  66. LEVOTHYROXINE SODIUM [Concomitant]
     Dosage: 50 MICROGRAM
     Route: 048
     Dates: start: 20110527, end: 20110607
  67. SODIUM PHOSPHATE [Concomitant]
     Dosage: 15 MILLIMOLE
     Route: 041
     Dates: start: 20110602, end: 20110602
  68. SODIUM POTASSIUM PHOSPHATE [Concomitant]
     Dosage: 2 PACKETS
     Route: 048
     Dates: start: 20110527, end: 20110527
  69. SODIUM POTASSIUM PHOSPHATE [Concomitant]
     Dosage: 1 TABLET
     Route: 048
     Dates: start: 20110528, end: 20110528

REACTIONS (3)
  - GENERAL PHYSICAL HEALTH DETERIORATION [None]
  - DEHYDRATION [None]
  - PROSTATE CANCER [None]
